FAERS Safety Report 22195499 (Version 2)
Quarter: 2023Q2

REPORT INFORMATION
  Report Type: Spontaneous
  Country: US (occurrence: US)
  Receive Date: 20230411
  Receipt Date: 20230418
  Transmission Date: 20230722
  Serious: Yes (Hospitalization)
  Sender: FDA-Public Use
  Company Number: US-GLAXOSMITHKLINE-US2023AMR050694

PATIENT
  Sex: Female

DRUGS (5)
  1. FLOLAN [Suspect]
     Active Substance: EPOPROSTENOL SODIUM
     Indication: Pulmonary arterial hypertension
     Dosage: 32 NG/KG, CO (32 NG/KG/MIN CONCENTRATION: 60,000 NG/ML)
     Dates: start: 20040716
  2. GLYCINE\MANNITOL\SODIUM CHLORIDE [Suspect]
     Active Substance: GLYCINE\MANNITOL\SODIUM CHLORIDE
     Indication: Vehicle solution use
     Dosage: UNK
  3. LETAIRIS [Concomitant]
     Active Substance: AMBRISENTAN
     Indication: Product used for unknown indication
     Dosage: UNK
  4. REVATIO [Concomitant]
     Active Substance: SILDENAFIL CITRATE
     Indication: Product used for unknown indication
     Dosage: UNK
  5. SILDENAFIL CITRATE [Concomitant]
     Active Substance: SILDENAFIL CITRATE
     Indication: Product used for unknown indication
     Dosage: UNK

REACTIONS (1)
  - Abdominal pain upper [Unknown]
